FAERS Safety Report 14812999 (Version 1)
Quarter: 2018Q2

REPORT INFORMATION
  Report Type: Spontaneous
  Country: US (occurrence: US)
  Receive Date: 20180426
  Receipt Date: 20180426
  Transmission Date: 20180711
  Serious: No
  Sender: FDA-Public Use
  Company Number: US-VIFOR (INTERNATIONAL) INC.-VIT-2018-03889

PATIENT
  Age: 49 Year
  Sex: Male

DRUGS (4)
  1. HYDRALAZINE [Concomitant]
     Active Substance: HYDRALAZINE HYDROCHLORIDE
  2. VELTASSA [Suspect]
     Active Substance: PATIROMER
     Indication: HYPERTENSION
     Route: 048
     Dates: start: 201803
  3. FUROSEMIDE. [Concomitant]
     Active Substance: FUROSEMIDE
  4. XANAX [Concomitant]
     Active Substance: ALPRAZOLAM

REACTIONS (3)
  - Drug administration error [Unknown]
  - Off label use [Unknown]
  - Furuncle [Unknown]

NARRATIVE: CASE EVENT DATE: 2018
